FAERS Safety Report 8121956 (Version 2)
Quarter: 2023Q1

REPORT INFORMATION
  Report Type: Spontaneous
  Country: FR (occurrence: FR)
  Receive Date: 20110906
  Receipt Date: 20230313
  Transmission Date: 20230418
  Serious: Yes (Other)
  Sender: FDA-Public Use
  Company Number: PHHY2011FR77870

PATIENT
  Age: 37 Year

DRUGS (19)
  1. METHYLPREDNISOLONE [Suspect]
     Active Substance: METHYLPREDNISOLONE
     Indication: Hodgkin^s disease
     Dosage: UNK UNK, CYCLIC
     Route: 065
  2. VINCRISTINE [Suspect]
     Active Substance: VINCRISTINE
     Indication: Hodgkin^s disease
     Dosage: UNK, TWO CYCLES (MOPPBVD)
     Route: 065
  3. PREDNISONE [Suspect]
     Active Substance: PREDNISONE
     Indication: Hodgkin^s disease
     Dosage: UNK, TWO CYCLES (MOPPBVD)
     Route: 065
  4. ETOPOSIDE [Suspect]
     Active Substance: ETOPOSIDE
     Indication: Hodgkin^s disease
     Dosage: UNK, CYCLIC
     Route: 065
  5. ETOPOSIDE [Suspect]
     Active Substance: ETOPOSIDE
     Dosage: UNK (ESHAP)
     Route: 065
  6. ADRIAMYCIN [Suspect]
     Active Substance: DOXORUBICIN HYDROCHLORIDE
     Indication: Hodgkin^s disease
     Dosage: UNK, CYCLIC (ABVD)
     Route: 065
  7. BLEOMYCIN [Suspect]
     Active Substance: BLEOMYCIN SULFATE
     Indication: Hodgkin^s disease
     Dosage: UNK, CYCLIC (2 ABVD)
     Route: 065
  8. BLEOMYCIN [Suspect]
     Active Substance: BLEOMYCIN SULFATE
     Dosage: UNK, CYCLIC (2 MOPPBVD BEAM)
     Route: 065
  9. VINDESINE [Suspect]
     Active Substance: VINDESINE
     Indication: Hodgkin^s disease
     Dosage: TWO CYCLES (MOPPBVD)
     Route: 065
  10. VINDESINE [Suspect]
     Active Substance: VINDESINE
     Dosage: UNK, CYCLIC (2ABVD)
     Route: 065
  11. DACARBAZINE [Suspect]
     Active Substance: DACARBAZINE
     Indication: Hodgkin^s disease
     Dosage: TWO CYCLES (MOPPBVD)
     Route: 065
  12. DACARBAZINE [Suspect]
     Active Substance: DACARBAZINE
     Dosage: UNK, CYCLIC (2ABVD)
     Route: 065
  13. MECHLORETHAMINE [Suspect]
     Active Substance: MECHLORETHAMINE
     Indication: Hodgkin^s disease
     Dosage: UNK, CYCLIC (2 MOPPBVD)
     Route: 065
  14. PROCARBAZINE [Suspect]
     Active Substance: PROCARBAZINE
     Indication: Hodgkin^s disease
     Dosage: TWO CYCLES (MOPPBVD)
     Route: 065
  15. CYTARABINE [Suspect]
     Active Substance: CYTARABINE
     Indication: Hodgkin^s disease
     Dosage: TWO CYCLES (BEAM)
     Route: 065
  16. MELPHALAN [Suspect]
     Active Substance: MELPHALAN
     Indication: Hodgkin^s disease
     Dosage: UNK UNK, CYCLIC
     Route: 065
  17. REVLIMID [Suspect]
     Active Substance: LENALIDOMIDE
     Indication: Hodgkin^s disease
     Dosage: TWO CYCLES
     Route: 065
  18. CISPLATIN [Suspect]
     Active Substance: CISPLATIN
     Indication: Hodgkin^s disease
     Dosage: UNK, Q3W (ESHAP)
     Route: 065
  19. GRANULOCYTE COLONY-STIMULATING FACTOR NOS [Concomitant]
     Active Substance: GRANULOCYTE COLONY-STIMULATING FACTOR NOS
     Indication: Prophylaxis
     Dosage: 5 MCG/KG/DAY
     Route: 065

REACTIONS (4)
  - Neutropenia [Unknown]
  - Thrombocytopenia [Unknown]
  - Anaemia [Unknown]
  - Product use in unapproved indication [Unknown]
